FAERS Safety Report 6285923-3 (Version None)
Quarter: 2009Q3

REPORT INFORMATION
  Report Type: 
  Country: None (occurrence: None)
  Receive Date: 20090728
  Receipt Date: 20081002
  Transmission Date: 20100115
  Serious: No
  Sender: FDA-Public Use
  Company Number: A0751407A

PATIENT
  Age: 61 Year
  Sex: Female

DRUGS (2)
  1. DYAZIDE [Suspect]
     Indication: DRUG USE FOR UNKNOWN INDICATION
     Route: 065
  2. ATENOLOL [Suspect]
     Dosage: 50MG UNKNOWN
     Route: 065

REACTIONS (1)
  - HYPERTENSION [None]
